FAERS Safety Report 5883620-7 (Version None)
Quarter: 2008Q3

REPORT INFORMATION
  Report Type: 
  Country: None (occurrence: None)
  Receive Date: 20080915
  Receipt Date: 20080815
  Transmission Date: 20090109
  Serious: No
  Sender: FDA-Public Use
  Company Number: US-BAYER-200831457NA

PATIENT
  Sex: Female

DRUGS (1)
  1. MIRENA [Suspect]
     Indication: CONTRACEPTION
     Route: 015
     Dates: start: 20080601

REACTIONS (4)
  - FUNGAL INFECTION [None]
  - GENITAL HAEMORRHAGE [None]
  - VAGINAL DISCHARGE [None]
  - VULVOVAGINAL DISCOMFORT [None]
